FAERS Safety Report 13247312 (Version 1)
Quarter: 2017Q1

REPORT INFORMATION
  Report Type: Spontaneous
  Country: US (occurrence: US)
  Receive Date: 20170217
  Receipt Date: 20170217
  Transmission Date: 20170428
  Serious: No
  Sender: FDA-Public Use
  Company Number: US-PFIZER INC-3175946

PATIENT
  Age: 32 Year
  Sex: Male
  Weight: 100 kg

DRUGS (2)
  1. MEPIVACAINE HCL [Suspect]
     Active Substance: MEPIVACAINE\MEPIVACAINE HYDROCHLORIDE
     Indication: NERVE BLOCK
     Dosage: 30 ML, ONCE
     Route: 053
     Dates: start: 20160216
  2. EPINEPHRINE. [Concomitant]
     Active Substance: EPINEPHRINE
     Indication: EPIDURAL TEST DOSE
     Dosage: 1/300,000; ONCE
     Route: 053
     Dates: start: 20160216

REACTIONS (1)
  - Drug ineffective [Recovered/Resolved]

NARRATIVE: CASE EVENT DATE: 20160216
